FAERS Safety Report 13455081 (Version 3)
Quarter: 2017Q3

REPORT INFORMATION
  Report Type: Spontaneous
  Country: MX (occurrence: MX)
  Receive Date: 20170419
  Receipt Date: 20170720
  Transmission Date: 20171127
  Serious: Yes (Other)
  Sender: FDA-Public Use
  Company Number: MX-GUERBET-MX-20170031

PATIENT
  Age: 57 Year
  Sex: Female
  Weight: 70 kg

DRUGS (7)
  1. OMEPRAZOL [Concomitant]
     Active Substance: OMEPRAZOLE
     Indication: PROPHYLAXIS
     Route: 048
     Dates: start: 20121207
  2. CLONAZEPAM. [Concomitant]
     Active Substance: CLONAZEPAM
     Indication: INSOMNIA
     Route: 048
     Dates: start: 20160622
  3. METFORMINA/GLIBENCLAMIDA [Concomitant]
     Indication: DIABETES MELLITUS
     Dosage: 500/2.5 MG
     Route: 048
     Dates: start: 20160818
  4. CALCIUM, VITAMIN D [Concomitant]
     Indication: OSTEOPENIA
     Route: 048
     Dates: start: 20130220
  5. OPTIRAY 320 [Suspect]
     Active Substance: IOVERSOL
     Indication: COMPUTERISED TOMOGRAM
     Route: 042
     Dates: start: 20170322, end: 20170322
  6. FULVESTRANT. [Concomitant]
     Active Substance: FULVESTRANT
     Indication: CHEMOTHERAPY
     Dosage: LAST CYCLE ON 15 FEBRUARY 2017.
     Route: 065
  7. LOPERAMIDE [Concomitant]
     Active Substance: LOPERAMIDE
     Indication: DIARRHOEA
     Dosage: AS REQUIRED
     Route: 048
     Dates: start: 20170321

REACTIONS (7)
  - Nausea [Recovered/Resolved]
  - Vomiting [Recovered/Resolved]
  - Chills [Recovered/Resolved]
  - Headache [Recovered/Resolved]
  - Dyspnoea [Recovered/Resolved]
  - Oxygen saturation decreased [Recovered/Resolved]
  - Bronchospasm [Recovered/Resolved]

NARRATIVE: CASE EVENT DATE: 20170322
